FAERS Safety Report 15250735 (Version 1)
Quarter: 2018Q3

REPORT INFORMATION
  Report Type: Spontaneous
  Country: AT (occurrence: AT)
  Receive Date: 20180807
  Receipt Date: 20180807
  Transmission Date: 20181010
  Serious: Yes (Hospitalization, Other)
  Sender: FDA-Public Use
  Company Number: PHHY2018AT059648

PATIENT
  Age: 40 Year
  Sex: Female

DRUGS (1)
  1. METHOTREXATE. [Suspect]
     Active Substance: METHOTREXATE
     Indication: PRODUCT USED FOR UNKNOWN INDICATION
     Dosage: 55 MG, UNK
     Route: 065

REACTIONS (12)
  - Sepsis [Unknown]
  - Diarrhoea [Unknown]
  - Anorectal disorder [Unknown]
  - Gastritis haemorrhagic [Unknown]
  - Tachycardia [Unknown]
  - Pancytopenia [Unknown]
  - Pyrexia [Unknown]
  - Duodenal ulcer [Unknown]
  - Intentional product misuse [Unknown]
  - Oral pain [Unknown]
  - Vaginal lesion [Unknown]
  - Atrial fibrillation [Unknown]
